FAERS Safety Report 17049951 (Version 4)
Quarter: 2021Q1

REPORT INFORMATION
  Report Type: Spontaneous
  Country: US (occurrence: US)
  Receive Date: 20191119
  Receipt Date: 20210220
  Transmission Date: 20210419
  Serious: Yes (Hospitalization, Other)
  Sender: FDA-Public Use
  Company Number: US-SHIRE-US201938438

PATIENT
  Sex: Male
  Weight: 76.19 kg

DRUGS (25)
  1. GAMMAGARD LIQUID [Suspect]
     Active Substance: HUMAN IMMUNOGLOBULIN G
     Dosage: 20 GRAM, 1X/2WKS
     Route: 042
     Dates: start: 20130826
  2. CEREFOLIN NAC [ACETYLCYSTEINE;CALCIUM LEVOMEFOLATE;MECOBALAMIN] [Concomitant]
     Active Substance: ACETYLCYSTEINE\LEVOMEFOLATE CALCIUM\METHYLCOBALAMIN
  3. ACETAZOLAMIDE. [Concomitant]
     Active Substance: ACETAZOLAMIDE
  4. NASONEX [Concomitant]
     Active Substance: MOMETASONE FUROATE
  5. VICODIN [Concomitant]
     Active Substance: ACETAMINOPHEN\HYDROCODONE BITARTRATE
  6. LEVOTHYROXINE. [Concomitant]
     Active Substance: LEVOTHYROXINE
  7. VIIBRYD [Concomitant]
     Active Substance: VILAZODONE HYDROCHLORIDE
  8. KLOR?CON [Concomitant]
     Active Substance: POTASSIUM CHLORIDE
  9. GAMMAGARD LIQUID [Suspect]
     Active Substance: HUMAN IMMUNOGLOBULIN G
     Indication: POLYNEUROPATHY
     Dosage: 20 GRAM, 1X/2WKS
     Route: 042
     Dates: start: 20130821
  10. NUVIGIL [Concomitant]
     Active Substance: ARMODAFINIL
  11. NORMAL SALINE [Concomitant]
     Active Substance: SODIUM CHLORIDE
  12. SODIUM CHLORIDE. [Concomitant]
     Active Substance: SODIUM CHLORIDE
  13. FENOFIBRATE. [Concomitant]
     Active Substance: FENOFIBRATE
  14. NEXIUM I.V. [Concomitant]
     Active Substance: ESOMEPRAZOLE SODIUM
  15. DESLORATADINE. [Concomitant]
     Active Substance: DESLORATADINE
  16. EPINEPHRINE. [Concomitant]
     Active Substance: EPINEPHRINE
  17. HEPARIN [Concomitant]
     Active Substance: HEPARIN SODIUM
  18. NIASPAN [Concomitant]
     Active Substance: NIACIN
  19. LOVAZA [Concomitant]
     Active Substance: OMEGA-3-ACID ETHYL ESTERS
  20. FENTANYL. [Concomitant]
     Active Substance: FENTANYL
  21. DIPHENHYDRAMINE. [Concomitant]
     Active Substance: DIPHENHYDRAMINE
  22. LORAZEPAM. [Concomitant]
     Active Substance: LORAZEPAM
  23. CARVEDILOL. [Concomitant]
     Active Substance: CARVEDILOL
  24. TRAZODONE [Concomitant]
     Active Substance: TRAZODONE HYDROCHLORIDE
  25. ALPRAZOLAM. [Concomitant]
     Active Substance: ALPRAZOLAM

REACTIONS (6)
  - Faecaloma [Unknown]
  - Infection [Unknown]
  - Malaise [Unknown]
  - Cerebrovascular accident [Unknown]
  - Pyrexia [Unknown]
  - Confusional state [Unknown]
